FAERS Safety Report 19489450 (Version 1)
Quarter: 2021Q3

REPORT INFORMATION
  Report Type: Spontaneous
  Country: DE (occurrence: DE)
  Receive Date: 20210703
  Receipt Date: 20210703
  Transmission Date: 20211014
  Serious: Yes (Hospitalization)
  Sender: FDA-Public Use
  Company Number: DE-TEVA-2021-DE-1928305

PATIENT
  Age: 80 Year
  Sex: Female

DRUGS (13)
  1. CARBIMAZOL [Concomitant]
     Active Substance: CARBIMAZOLE
     Dosage: .5 DOSAGE FORMS DAILY; 5 MG, 0.5?0?0?0
     Route: 048
  2. PROPRANOLOL [Concomitant]
     Active Substance: PROPRANOLOL HYDROCHLORIDE
     Dosage: 30 MILLIGRAM DAILY; 1?1?1?0
     Route: 048
  3. APIXABAN [Suspect]
     Active Substance: APIXABAN
     Dosage: 5 MILLIGRAM DAILY; 1?0?1?0,
     Route: 048
  4. DIMENHYDRINATE. [Concomitant]
     Active Substance: DIMENHYDRINATE
     Dosage: 50 MG, IF NECESSARY A MAXIMUM OF 3 IN 24 HOURS
     Route: 048
  5. FUROSEMID [Concomitant]
     Active Substance: FUROSEMIDE
     Dosage: 40 MG, IF NECESSARY
     Route: 048
  6. IBUPROFEN. [Suspect]
     Active Substance: IBUPROFEN
     Dosage: 600 MG, SINCE 1D IMPLEMENTED ON DEMAND MEDICATION UP TO 3 PIECES PER DAY IN THE EVENING BEFORE FIXED
     Route: 048
  7. TILIDINE/NALOXONE [Concomitant]
     Active Substance: NALOXONE HYDROCHLORIDE\TILIDINE HYDROCHLORIDE
     Dosage: 1 DOSAGE FORMS DAILY; 8 | 100 MG, IF NECESSARY
     Route: 048
  8. LACTULOSE. [Concomitant]
     Active Substance: LACTULOSE
     Dosage: 3.335 | 5 G / ML, 10ML IF NECESSARY IN 24H, JUICE, 1 DF
     Route: 048
  9. PANTOPRAZOL [Concomitant]
     Active Substance: PANTOPRAZOLE SODIUM
     Dosage: 80 MILLIGRAM DAILY; 1?0?1?0
     Route: 048
  10. DIGITOXIN [Concomitant]
     Active Substance: DIGITOXIN
     Dosage: .05 MILLIGRAM DAILY; 1?0?0?0
     Route: 048
  11. CANDESARTAN. [Concomitant]
     Active Substance: CANDESARTAN
     Dosage: .5 DOSAGE FORMS DAILY; 8 MG, 0.5?0?0?0
     Route: 048
  12. PROSPAN HUSTENSAFT [Concomitant]
     Dosage: 35 | 5 MG / ML, IF NECESSARY, JUICE, 1 DF
     Route: 048
  13. LOPERAMID [Concomitant]
     Active Substance: LOPERAMIDE
     Dosage: 2 MG, IF NECESSARY A MAXIMUM OF 2 IN 24 HOURS, 1 DF
     Route: 048

REACTIONS (3)
  - Nausea [Not Recovered/Not Resolved]
  - Fall [Unknown]
  - Medication error [Unknown]
